FAERS Safety Report 16269832 (Version 1)
Quarter: 2019Q2

REPORT INFORMATION
  Report Type: Spontaneous
  Country: US (occurrence: US)
  Receive Date: 20190503
  Receipt Date: 20190503
  Transmission Date: 20190711
  Serious: No
  Sender: FDA-Public Use
  Company Number: US-GLAXOSMITHKLINE-US2019AMR073106

PATIENT
  Sex: Male

DRUGS (1)
  1. FLOVENT DISKUS [Suspect]
     Active Substance: FLUTICASONE PROPIONATE
     Indication: PRODUCT USED FOR UNKNOWN INDICATION
     Dosage: UNK
     Route: 055
     Dates: start: 2018

REACTIONS (3)
  - Nausea [Unknown]
  - Ill-defined disorder [Unknown]
  - Product dose omission [Unknown]
